FAERS Safety Report 10175447 (Version 1)
Quarter: 2014Q2

REPORT INFORMATION
  Report Type: Spontaneous
  Country: US (occurrence: US)
  Receive Date: 20140515
  Receipt Date: 20140515
  Transmission Date: 20141212
  Serious: No
  Sender: FDA-Public Use
  Company Number: US-009507513-1404USA011418

PATIENT
  Sex: Male

DRUGS (7)
  1. PEGINTRON [Suspect]
     Indication: HEPATITIS C
     Dosage: 0.5ML, Q7DAYS, , REDIPEN
     Dates: start: 20140224
  2. REBETOL [Suspect]
     Indication: HEPATITIS C
     Dosage: 1200 MG, B.I.D. (TWICE A DAY)
     Route: 048
     Dates: start: 20140224
  3. SOVALDI [Concomitant]
     Dosage: DAILY
  4. AMLODIPINE [Concomitant]
     Dosage: DAILY
  5. COLCRYS [Concomitant]
     Dosage: DAILY
  6. ULORIC [Concomitant]
     Dosage: DAILY
  7. OXYBUTYNIN [Concomitant]
     Dosage: DAILY
     Route: 062

REACTIONS (4)
  - Infusion site irritation [Unknown]
  - Arthritis [Unknown]
  - Injection site erythema [Unknown]
  - Injection site pruritus [Unknown]
